FAERS Safety Report 16169774 (Version 2)
Quarter: 2019Q2

REPORT INFORMATION
  Report Type: Spontaneous
  Country: US (occurrence: US)
  Receive Date: 20190408
  Receipt Date: 20190412
  Transmission Date: 20190711
  Serious: Yes (Other)
  Sender: FDA-Public Use
  Company Number: PHHY2019US078309

PATIENT
  Age: 62 Year
  Sex: Female

DRUGS (2)
  1. DEXAMETHASONE. [Suspect]
     Active Substance: DEXAMETHASONE
     Indication: POST LAMINECTOMY SYNDROME
     Dosage: 10 MG, UNK
     Route: 008
  2. DEXAMETHASONE. [Suspect]
     Active Substance: DEXAMETHASONE
     Indication: SCIATICA

REACTIONS (4)
  - Chorioretinopathy [Unknown]
  - Visual impairment [Unknown]
  - Product use in unapproved indication [Unknown]
  - Serous retinal detachment [Unknown]
